FAERS Safety Report 8407246-6 (Version None)
Quarter: 2012Q2

REPORT INFORMATION
  Report Type: 
  Country: None (occurrence: None)
  Receive Date: 20120529
  Receipt Date: 20120521
  Transmission Date: 20120825
  Serious: Yes (Life-Threatening)
  Sender: FDA-Public Use
  Company Number: ABR_00487_2012

PATIENT
  Age: 39 Year
  Sex: Female
  Weight: 52.7 kg

DRUGS (11)
  1. OMEPRAZOLE [Concomitant]
  2. QVAR 40 [Concomitant]
  3. METOCLOPRAMIDE [Concomitant]
  4. AZATHIOPRINE [Concomitant]
  5. CODEINE PHOSPHATE [Concomitant]
  6. PREDNISOLONE [Concomitant]
  7. ASPIRIN [Concomitant]
  8. COTRIM [Concomitant]
  9. VENTOLIN [Concomitant]
  10. ERYTHROMYCIN [Suspect]
     Indication: PRODUCT USED FOR UNKNOWN INDICATION
     Dosage: DF; DF
     Dates: start: 20120214, end: 20120221
  11. ERYTHROMYCIN [Suspect]
     Indication: PRODUCT USED FOR UNKNOWN INDICATION
     Dosage: DF; DF
     Dates: start: 20120501

REACTIONS (4)
  - HEPATITIS [None]
  - TOXICITY TO VARIOUS AGENTS [None]
  - LIVER TRANSPLANT [None]
  - HEPATIC FAILURE [None]
